FAERS Safety Report 13895919 (Version 1)
Quarter: 2017Q3

REPORT INFORMATION
  Report Type: Spontaneous
  Country: US (occurrence: None)
  Receive Date: 20170815
  Receipt Date: 20170815
  Transmission Date: 20171127
  Serious: Yes (Hospitalization)
  Sender: FDA-Public Use
  Company Number: None

PATIENT
  Age: 70 Year
  Sex: Male
  Weight: 88 kg

DRUGS (1)
  1. SIMVASTATIN. [Suspect]
     Active Substance: SIMVASTATIN
     Indication: HYPERLIPIDAEMIA
     Route: 048
     Dates: start: 20170104, end: 20170513

REACTIONS (6)
  - Hypertension [None]
  - Rhabdomyolysis [None]
  - Acute kidney injury [None]
  - Renal tubular necrosis [None]
  - Haemorrhoids [None]
  - Major depression [None]

NARRATIVE: CASE EVENT DATE: 20170421
